FAERS Safety Report 14448837 (Version 1)
Quarter: 2018Q1

REPORT INFORMATION
  Report Type: Spontaneous
  Country: SI (occurrence: SI)
  Receive Date: 20180126
  Receipt Date: 20180126
  Transmission Date: 20180509
  Serious: Yes (Other)
  Sender: FDA-Public Use
  Company Number: SI-TEVA-2018-SI-850183

PATIENT
  Sex: Female

DRUGS (2)
  1. PALBOCICLIB [Suspect]
     Active Substance: PALBOCICLIB
     Indication: BREAST CANCER
     Dosage: 125 MG, ON DAYS 1-21, CYCLIC
     Route: 065
     Dates: start: 20161104
  2. LETROZOLE. [Suspect]
     Active Substance: LETROZOLE
     Indication: BREAST CANCER
     Dosage: 2.5 MG, UNK
     Route: 065
     Dates: start: 20161104

REACTIONS (4)
  - Leukopenia [Unknown]
  - Neutropenia [Unknown]
  - Fatigue [Unknown]
  - Rash erythematous [Unknown]
